FAERS Safety Report 25831227 (Version 2)
Quarter: 2025Q3

REPORT INFORMATION
  Report Type: Spontaneous
  Country: US (occurrence: US)
  Receive Date: 20250922
  Receipt Date: 20250924
  Transmission Date: 20251020
  Serious: Yes (Other)
  Sender: PFIZER
  Company Number: US-PFIZER INC-202500183124

PATIENT
  Age: 73 Year
  Sex: Male

DRUGS (1)
  1. XELJANZ [Suspect]
     Active Substance: TOFACITINIB CITRATE
     Indication: Rheumatoid arthritis
     Dosage: UNK UNK, 1X/DAY

REACTIONS (5)
  - Spinal operation [Unknown]
  - Back pain [Unknown]
  - Therapeutic product effect decreased [Unknown]
  - Off label use [Unknown]
  - Therapeutic response unexpected [Unknown]
